FAERS Safety Report 9190276 (Version 1)
Quarter: 2013Q1

REPORT INFORMATION
  Report Type: Spontaneous
  Country: GB (occurrence: None)
  Receive Date: 20130322
  Receipt Date: 20130322
  Transmission Date: 20140127
  Serious: Yes (Other)
  Sender: FDA-Public Use
  Company Number: ABR_00874_2013

PATIENT
  Age: 57 Year
  Sex: Male

DRUGS (12)
  1. ERYTHROMYCIN (ERYTHROMYCIN) [Suspect]
     Indication: PRODUCT USED FOR UNKNOWN INDICATION
     Dosage: DF
     Dates: start: 20130222
  2. BENDROFLUMETHIAZIDE [Concomitant]
  3. RAMIPRIL [Concomitant]
  4. METFORMIN [Concomitant]
  5. APSIRIN [Concomitant]
  6. ATENOLOL [Concomitant]
  7. OMEPRAZOLE [Concomitant]
  8. SALBUTAMOL [Concomitant]
  9. SERETIDE [Concomitant]
  10. SIMVASTATIN [Concomitant]
  11. TIOTROPIUM [Concomitant]
  12. TRIMITHOPRIM [Concomitant]

REACTIONS (3)
  - Decreased immune responsiveness [None]
  - Fungal infection [None]
  - Opportunistic infection [None]
